FAERS Safety Report 19428638 (Version 1)
Quarter: 2021Q2

REPORT INFORMATION
  Report Type: Spontaneous
  Country: US (occurrence: US)
  Receive Date: 20210617
  Receipt Date: 20210617
  Transmission Date: 20210717
  Serious: Yes (Death)
  Sender: FDA-Public Use
  Company Number: None

PATIENT
  Age: 43 Year
  Sex: Female

DRUGS (1)
  1. COSENTYX [Suspect]
     Active Substance: SECUKINUMAB
     Indication: SPONDYLOARTHROPATHY
     Dosage: ?          OTHER FREQUENCY:WEEKLY X4 MONTHLY;?
     Route: 058
     Dates: start: 20210504

REACTIONS (1)
  - Death [None]

NARRATIVE: CASE EVENT DATE: 20210516
